FAERS Safety Report 6891467-8 (Version None)
Quarter: 2010Q3

REPORT INFORMATION
  Report Type: 
  Country: None (occurrence: None)
  Receive Date: 20100731
  Receipt Date: 20070730
  Transmission Date: 20110219
  Serious: No
  Sender: FDA-Public Use
  Company Number: US-PFIZER INC-2007049058

PATIENT
  Age: 40 Year
  Sex: Female

DRUGS (1)
  1. DEPO-MEDROL [Suspect]
     Indication: ARTHRITIS
     Dosage: EVERY THREE MONTHS
     Dates: start: 20070101

REACTIONS (1)
  - BLOOD CHOLESTEROL INCREASED [None]
